FAERS Safety Report 12430013 (Version 1)
Quarter: 2016Q2

REPORT INFORMATION
  Report Type: Spontaneous
  Country: US (occurrence: US)
  Receive Date: 20160602
  Receipt Date: 20160602
  Transmission Date: 20160815
  Serious: Yes (Other)
  Sender: FDA-Public Use
  Company Number: US-KADMON PHARMACEUTICALS, LLC-KAD201509-003405

PATIENT
  Sex: Female

DRUGS (3)
  1. RIBASPHERE [Suspect]
     Active Substance: RIBAVIRIN
     Indication: HEPATITIS C
     Dates: start: 20141220, end: 20150120
  2. SOVALDI [Suspect]
     Active Substance: SOFOSBUVIR
     Indication: HEPATITIS C
     Dates: start: 20141220, end: 20150225
  3. RIBASPHERE [Suspect]
     Active Substance: RIBAVIRIN
     Dates: start: 20150211, end: 20150225

REACTIONS (4)
  - Haemoglobin decreased [Unknown]
  - Drug ineffective [Unknown]
  - Asthenia [Unknown]
  - Depressed mood [Unknown]

NARRATIVE: CASE EVENT DATE: 20150120
